FAERS Safety Report 16165574 (Version 1)
Quarter: 2019Q2

REPORT INFORMATION
  Report Type: Spontaneous
  Country: NL (occurrence: NL)
  Receive Date: 20190405
  Receipt Date: 20190405
  Transmission Date: 20190711
  Serious: Yes (Hospitalization)
  Sender: FDA-Public Use
  Company Number: NL-MYLANLABS-2019M1028726

PATIENT
  Age: 83 Year
  Sex: Female

DRUGS (21)
  1. ZOLPIDEM [Suspect]
     Active Substance: ZOLPIDEM\ZOLPIDEM TARTRATE
     Indication: PRODUCT USED FOR UNKNOWN INDICATION
     Dosage: 10 MILLIGRAM, QD, 10 MG, 1X/DAY
     Route: 048
  2. FUROSEMIDE. [Concomitant]
     Active Substance: FUROSEMIDE
     Dosage: 20 MILLIGRAM
     Route: 048
  3. PREDNISOLONE. [Concomitant]
     Active Substance: PREDNISOLONE
     Dosage: 30 MILLIGRAM, QD,30 MG, 1X/DAY
     Route: 048
  4. ISOSORBIDEMONONITRAAT [Concomitant]
     Dosage: 50 MILLIGRAM, QD, 50 MG, 1X/DAY
     Route: 065
  5. METOPROLOL. [Concomitant]
     Active Substance: METOPROLOL
     Dosage: 50 MILLIGRAM, BID (50 MG, 2X/DAY), 100 MG ,QD
     Route: 048
  6. CALCIUM CARBONATE W/COLECALCIFEROL [Concomitant]
     Active Substance: CALCIUM CARBONATE\CHOLECALCIFEROL
     Dosage: UNK, QD, 1.25G / 800 IU, 1X/DAY
     Route: 048
  7. SUBLINGUAL B12 [Concomitant]
     Dosage: 0.4 UNK, UNK
  8. DIMETHYLSULFOXYDE [Concomitant]
     Dosage: UNK
     Route: 003
  9. HYDROCHLOORTHIAZIDE [Concomitant]
     Active Substance: HYDROCHLOROTHIAZIDE
     Dosage: 25 MG, UNK
     Route: 048
  10. GABAPENTIN. [Concomitant]
     Active Substance: GABAPENTIN
     Dosage: 900 MILLIGRAM, QD (300 MG, 3X/DAY)
     Route: 065
  11. SOMAVERT [Suspect]
     Active Substance: PEGVISOMANT
     Indication: ACROMEGALY
     Dosage: 120 MILLIGRAM, QW (60 MG, 2X/WEEK)
     Route: 058
     Dates: start: 20180705
  12. NITROGLYCERIN. [Concomitant]
     Active Substance: NITROGLYCERIN
     Dosage: UNK, QD, 1-4 TIMES/DAY
     Route: 065
  13. PRAVASTATIN. [Concomitant]
     Active Substance: PRAVASTATIN
     Dosage: 40 MILLIGRAM
     Route: 048
  14. OCTREOTIDE. [Concomitant]
     Active Substance: OCTREOTIDE
     Dosage: UNK
  15. ALFACALCIDOL [Concomitant]
     Active Substance: ALFACALCIDOL
     Dosage: 0.5 MICROGRAM, QD, 0.50 UG, 1X/DAY
     Route: 065
  16. NATRIUM HYDROCARBONATE [Concomitant]
     Dosage: 3000 MILLIGRAM, QD (1000 MG, 3X/DAY)
     Route: 048
  17. INSULINE GLARGINE [Concomitant]
     Active Substance: INSULIN GLARGINE
     Dosage: UNK
     Route: 065
  18. ACENOCOUMAROL [Concomitant]
     Active Substance: ACENOCOUMAROL
     Dosage: UNK
     Route: 048
  19. AMLODIPINE [Concomitant]
     Active Substance: AMLODIPINE BESYLATE
     Dosage: 5 MILLIGRAM, QD, 5 MG, 1X/DAY
     Route: 048
  20. ACETYLSALICYLZUUR [Concomitant]
     Active Substance: ASPIRIN
     Dosage: UNK
     Route: 048
  21. PANTOPRAZOLE [Concomitant]
     Active Substance: PANTOPRAZOLE
     Dosage: 40 MILLIGRAM, QD, 40 MG, 1X/DAY
     Route: 048

REACTIONS (2)
  - Chest discomfort [Recovered/Resolved]
  - Product use issue [Unknown]

NARRATIVE: CASE EVENT DATE: 2018
